FAERS Safety Report 6274772-8 (Version None)
Quarter: 2009Q3

REPORT INFORMATION
  Report Type: 
  Country: None (occurrence: None)
  Receive Date: 20090721
  Receipt Date: 20070430
  Transmission Date: 20100115
  Serious: Yes (Other)
  Sender: FDA-Public Use
  Company Number: US-ASTRAZENECA-2006UW10869

PATIENT
  Age: 12503 Day
  Sex: Female
  Weight: 157.9 kg

DRUGS (19)
  1. SEROQUEL [Suspect]
     Indication: INSOMNIA
     Dosage: 25 TO 100 MG
     Route: 048
     Dates: start: 20051102
  2. SEROQUEL [Suspect]
     Route: 048
     Dates: end: 20060502
  3. METHADONE HCL [Concomitant]
     Dates: start: 20040101
  4. GLUCOTROL [Concomitant]
  5. CELEXA [Concomitant]
  6. TRAZODONE [Concomitant]
  7. SERZONE [Concomitant]
  8. LANTUS [Concomitant]
  9. AVANDIA [Concomitant]
  10. AMARYL [Concomitant]
  11. ZOCOR [Concomitant]
  12. VALIUM [Concomitant]
  13. PREVACID [Concomitant]
  14. MOTRIN [Concomitant]
  15. LYRICA [Concomitant]
  16. COREG [Concomitant]
  17. COUMADIN [Concomitant]
  18. PERCOCET [Concomitant]
  19. DILANTIN [Concomitant]

REACTIONS (2)
  - DIABETES MELLITUS [None]
  - DIABETIC NEUROPATHY [None]
